FAERS Safety Report 11990328 (Version 5)
Quarter: 2016Q2

REPORT INFORMATION
  Report Type: Report from Study
  Country: FR (occurrence: FR)
  Receive Date: 20160202
  Receipt Date: 20160627
  Transmission Date: 20160815
  Serious: Yes (Hospitalization, Other)
  Sender: FDA-Public Use
  Company Number: FR-ABBVIE-16P-056-1547411-00

PATIENT
  Age: 57 Year
  Sex: Female
  Weight: 58 kg

DRUGS (8)
  1. METEOXANE [Concomitant]
     Active Substance: AMOBARBITAL\BELLADONNA LEAF\DIMETHICONE\ERGOTAMINE TARTRATE
     Indication: ABDOMINAL PAIN
     Dosage: 125/80 MG
  2. INORIAL [Concomitant]
     Active Substance: BILASTINE
     Indication: HYPERSENSITIVITY
     Dates: start: 201510
  3. TAREG [Concomitant]
     Active Substance: VALSARTAN
     Indication: HYPERTENSION
     Dates: start: 201511
  4. SPASFON [Concomitant]
     Active Substance: PHLOROGLUCINOL
     Indication: GASTROINTESTINAL PAIN
     Dosage: 62,2 MG/80 MG
  5. VENTOLINE [Concomitant]
     Active Substance: ALBUTEROL
     Indication: HYPERSENSITIVITY
     Dates: start: 201510
  6. VIEKIRAX [Suspect]
     Active Substance: OMBITASVIR\PARITAPREVIR\RITONAVIR
     Indication: HEPATITIS C
     Dosage: 12.5/75/50MG X 2 (ONCE DAILY)
     Route: 048
     Dates: start: 20151105
  7. EXVIERA [Suspect]
     Active Substance: DASABUVIR
     Indication: HEPATITIS C
     Dosage: 200 MG  (IN THE MORNING AND IN THE EVENING)
     Route: 048
     Dates: start: 20151105
  8. DOLIPRANE [Concomitant]
     Active Substance: ACETAMINOPHEN
     Indication: HEADACHE

REACTIONS (6)
  - Hypertension [Recovered/Resolved]
  - Angina unstable [Recovered/Resolved]
  - Dyspnoea [Recovered/Resolved]
  - Chest pain [Recovered/Resolved]
  - Carotid artery aneurysm [Unknown]
  - Vasculitis cerebral [Unknown]

NARRATIVE: CASE EVENT DATE: 20151127
